FAERS Safety Report 9982383 (Version 1)
Quarter: 2014Q1

REPORT INFORMATION
  Report Type: Spontaneous
  Country: US (occurrence: None)
  Receive Date: 20140306
  Receipt Date: 20140306
  Transmission Date: 20141002
  Serious: No
  Sender: FDA-Public Use
  Company Number: None

PATIENT
  Age: 62 Year
  Sex: Male
  Weight: 106.82 kg

DRUGS (8)
  1. INTRON A [Suspect]
     Dosage: 235 MILLION IU
     Dates: end: 20140228
  2. ACETAMINOPHEN [Concomitant]
  3. AMITRIPTYLINE [Concomitant]
  4. MULTIVITAMIN [Concomitant]
  5. ESOMEPRAZOLE [Concomitant]
  6. IBUPROFEN [Concomitant]
  7. PROCHLORPERAZINE [Concomitant]
  8. SALMETEROL [Concomitant]

REACTIONS (7)
  - Lymphadenopathy [None]
  - Metastatic malignant melanoma [None]
  - Chills [None]
  - Headache [None]
  - Pain [None]
  - Nausea [None]
  - Vomiting [None]
